FAERS Safety Report 7327887-7 (Version None)
Quarter: 2011Q1

REPORT INFORMATION
  Report Type: 
  Country: None (occurrence: None)
  Receive Date: 20110303
  Receipt Date: 20110221
  Transmission Date: 20110831
  Serious: Yes (Other)
  Sender: FDA-Public Use
  Company Number: FR-JNJFOC-20110107510

PATIENT
  Age: 14 Year
  Sex: Female
  Weight: 41 kg

DRUGS (6)
  1. REMICADE [Suspect]
     Route: 042
  2. REMICADE [Suspect]
     Route: 042
  3. SOLU-MEDROL [Concomitant]
     Indication: PREMEDICATION
  4. IMUREL [Concomitant]
     Indication: CROHN'S DISEASE
  5. REMICADE [Suspect]
     Route: 042
  6. REMICADE [Suspect]
     Indication: CROHN'S DISEASE
     Route: 042

REACTIONS (5)
  - INFUSION RELATED REACTION [None]
  - HEADACHE [None]
  - MALAISE [None]
  - HYPOTENSION [None]
  - TYPE IV HYPERSENSITIVITY REACTION [None]
